FAERS Safety Report 21561409 (Version 1)
Quarter: 2022Q4

REPORT INFORMATION
  Report Type: Spontaneous
  Country: US (occurrence: US)
  Receive Date: 20221107
  Receipt Date: 20221107
  Transmission Date: 20230113
  Serious: Yes (Other)
  Sender: FDA-Public Use
  Company Number: US-SAMSUNG BIOEPIS-SB-2022-28231

PATIENT
  Age: 14 Year
  Sex: Male

DRUGS (4)
  1. ADALIMUMAB [Suspect]
     Active Substance: ADALIMUMAB
     Indication: Colitis ulcerative
     Dosage: FIRST TREATMENT PERIOD/APPROXIMATE TIME ON ADALIMUMAB WAS 13 MONTHS
     Route: 065
  2. ADALIMUMAB [Suspect]
     Active Substance: ADALIMUMAB
     Dosage: SECOND TREATMENT PERIOD/APPROXIMATE TIME ON ADALIMUMAB WAS 3 MONTHS
     Route: 065
  3. INFLIXIMAB [Suspect]
     Active Substance: INFLIXIMAB
     Indication: Colitis ulcerative
     Dosage: UNKNOWN
     Route: 065
  4. MESALAMINE [Concomitant]
     Active Substance: MESALAMINE
     Indication: Colitis ulcerative
     Dosage: UNKNOWN/USED IN SECOND TREATMENT PERIOD IN COMBINATION WITH ADALIMUMAB
     Route: 065

REACTIONS (5)
  - Drug ineffective [Unknown]
  - Colitis ulcerative [Recovering/Resolving]
  - Drug specific antibody [Unknown]
  - Drug level decreased [Unknown]
  - Off label use [Unknown]
